FAERS Safety Report 21766605 (Version 1)
Quarter: 2022Q4

REPORT INFORMATION
  Report Type: Spontaneous
  Country: US (occurrence: US)
  Receive Date: 20221222
  Receipt Date: 20221222
  Transmission Date: 20230112
  Serious: Yes (Other)
  Sender: FDA-Public Use
  Company Number: US-TEVA-2022-US-2836353

PATIENT
  Age: 74 Year
  Sex: Male
  Weight: 56.7 kg

DRUGS (2)
  1. LORAZEPAM [Suspect]
     Active Substance: LORAZEPAM
     Indication: Anxiety
     Dosage: SPARINGLY
     Route: 065
  2. LORAZEPAM [Suspect]
     Active Substance: LORAZEPAM
     Indication: Depression

REACTIONS (6)
  - Hallucination, auditory [Unknown]
  - Irritability [Unknown]
  - Balance disorder [Unknown]
  - Gait disturbance [Unknown]
  - Foot deformity [Unknown]
  - Intentional dose omission [Unknown]
